FAERS Safety Report 9776943 (Version 1)
Quarter: 2013Q4

REPORT INFORMATION
  Report Type: Spontaneous
  Country: US (occurrence: US)
  Receive Date: 20131221
  Receipt Date: 20131221
  Transmission Date: 20140711
  Serious: No
  Sender: FDA-Public Use
  Company Number: 2013SP003419

PATIENT
  Age: 32 Year
  Sex: Female

DRUGS (6)
  1. VANCOMYCIN [Suspect]
     Indication: PRODUCT USED FOR UNKNOWN INDICATION
  2. ZOFRAN [Suspect]
  3. PLAQUENIL /00072603/ [Suspect]
  4. TORADOL [Suspect]
  5. PROZAC [Suspect]
  6. BACTRIM [Suspect]

REACTIONS (1)
  - Drug hypersensitivity [Unknown]
